FAERS Safety Report 10195171 (Version 1)
Quarter: 2014Q2

REPORT INFORMATION
  Report Type: Spontaneous
  Country: ES (occurrence: ES)
  Receive Date: 20140526
  Receipt Date: 20140526
  Transmission Date: 20141212
  Serious: Yes (Other)
  Sender: FDA-Public Use
  Company Number: ES-MERCK-1405ESP011945

PATIENT
  Sex: 0

DRUGS (8)
  1. BOCEPREVIR [Suspect]
     Indication: HEPATITIS C
     Route: 048
  2. BOCEPREVIR [Suspect]
     Indication: HEPATIC CIRRHOSIS
  3. RIBAVIRIN [Suspect]
     Indication: HEPATIC CIRRHOSIS
     Route: 048
  4. RIBAVIRIN [Suspect]
     Indication: HEPATITIS C
  5. PEGINTERFERON ALFA-2B [Suspect]
     Indication: HEPATIC CIRRHOSIS
  6. PEGINTERFERON ALFA-2B [Suspect]
     Indication: HEPATITIS C
  7. TELAPREVIR [Suspect]
     Indication: HEPATIC CIRRHOSIS
  8. TELAPREVIR [Suspect]
     Indication: HEPATITIS C

REACTIONS (1)
  - Adverse event [Unknown]
